FAERS Safety Report 24013547 (Version 1)
Quarter: 2024Q2

REPORT INFORMATION
  Report Type: Spontaneous
  Country: US (occurrence: US)
  Receive Date: 20240626
  Receipt Date: 20240626
  Transmission Date: 20240715
  Serious: Yes (Life-Threatening, Hospitalization)
  Sender: FDA-Public Use
  Company Number: US-SA-SAC20240625000452

PATIENT
  Age: 69 Year
  Sex: Male

DRUGS (1)
  1. NEXVIAZYME [Suspect]
     Active Substance: AVALGLUCOSIDASE ALFA-NGPT
     Indication: Glycogen storage disease type II
     Dosage: 20 MG/KG, QOW
     Route: 041
     Dates: start: 20130101

REACTIONS (5)
  - Presyncope [Recovered/Resolved]
  - Fall [Recovered/Resolved]
  - Bradycardia [Recovered/Resolved]
  - Blood pressure decreased [Recovered/Resolved]
  - Dizziness [Recovered/Resolved]

NARRATIVE: CASE EVENT DATE: 20240503
